FAERS Safety Report 5195908-6 (Version None)
Quarter: 2007Q1

REPORT INFORMATION
  Report Type: 
  Country: None (occurrence: None)
  Receive Date: 20070102
  Receipt Date: 20061220
  Transmission Date: 20070707
  Serious: Yes (Hospitalization)
  Sender: FDA-Public Use
  Company Number: US-MERCK-0612USA03904

PATIENT
  Age: 72 Year
  Sex: Male

DRUGS (5)
  1. ZOCOR [Suspect]
     Indication: BLOOD CHOLESTEROL INCREASED
     Route: 048
     Dates: start: 20020401, end: 20040501
  2. FELODIPINE [Concomitant]
     Indication: HYPERTENSION
     Route: 065
     Dates: start: 20030301, end: 20031101
  3. PRINIVIL [Concomitant]
     Route: 048
     Dates: start: 20020401
  4. LANOXIN [Concomitant]
     Indication: CARDIAC DISORDER
     Route: 065
     Dates: start: 20031201, end: 20040901
  5. VIOXX [Concomitant]
     Indication: MUSCULOSKELETAL PAIN
     Route: 048
     Dates: start: 20020101, end: 20040901

REACTIONS (2)
  - HYPERSENSITIVITY [None]
  - MYOCARDIAL INFARCTION [None]
